FAERS Safety Report 6242333-2 (Version None)
Quarter: 2009Q2

REPORT INFORMATION
  Report Type: 
  Country: None (occurrence: None)
  Receive Date: 20090624
  Receipt Date: 20090616
  Transmission Date: 20091009
  Serious: Yes (Other)
  Sender: FDA-Public Use
  Company Number: AU-BIOGENIDEC-2009BI011371

PATIENT
  Age: 37 Year
  Sex: Female

DRUGS (2)
  1. TYSABRI [Suspect]
     Indication: RELAPSING-REMITTING MULTIPLE SCLEROSIS
     Route: 042
     Dates: start: 20080603, end: 20090407
  2. TYSABRI [Suspect]
     Route: 042
     Dates: start: 20090505

REACTIONS (7)
  - ANXIETY [None]
  - HYPOPHAGIA [None]
  - LYMPHOCYTOSIS [None]
  - PROCEDURAL HEADACHE [None]
  - PROCEDURAL NAUSEA [None]
  - STRESS [None]
  - VOMITING [None]
